FAERS Safety Report 7583411-5 (Version None)
Quarter: 2011Q2

REPORT INFORMATION
  Report Type: 
  Country: None (occurrence: None)
  Receive Date: 20110630
  Receipt Date: 20110608
  Transmission Date: 20111010
  Serious: Yes (Other)
  Sender: FDA-Public Use
  Company Number: US-BAYER-201035214NA

PATIENT
  Age: 26 Year
  Sex: Female
  Weight: 58.05 kg

DRUGS (3)
  1. YASMIN [Suspect]
     Indication: CONTRACEPTION
     Dosage: 1 DF, QD
     Route: 048
     Dates: start: 20060601, end: 20080601
  2. DROSPIRENONE AND ETHINYL ESTRADIOL [Suspect]
     Dosage: UNK
     Route: 048
     Dates: start: 20080701, end: 20090901
  3. ZOLOFT [Concomitant]
     Indication: POSTPARTUM DEPRESSION
     Dosage: 50 MG, QD
     Route: 048
     Dates: start: 20050101

REACTIONS (9)
  - CHOLECYSTITIS CHRONIC [None]
  - ABDOMINAL PAIN [None]
  - VOMITING [None]
  - PROCEDURAL PAIN [None]
  - MEDICAL DIET [None]
  - GALLBLADDER DISORDER [None]
  - CHOLELITHIASIS [None]
  - WEIGHT DECREASED [None]
  - NAUSEA [None]
